FAERS Safety Report 13679283 (Version 1)
Quarter: 2017Q2

REPORT INFORMATION
  Report Type: Spontaneous
  Country: US (occurrence: US)
  Receive Date: 20170622
  Receipt Date: 20170622
  Transmission Date: 20170830
  Serious: Yes (Hospitalization)
  Sender: FDA-Public Use
  Company Number: US-JNJFOC-20170620203

PATIENT
  Age: 33 Year
  Sex: Female

DRUGS (1)
  1. STELARA [Suspect]
     Active Substance: USTEKINUMAB
     Indication: ARTHRITIS
     Route: 058
     Dates: start: 201501, end: 201704

REACTIONS (3)
  - Product use in unapproved indication [Unknown]
  - Thyroid cancer [Unknown]
  - Off label use [Unknown]

NARRATIVE: CASE EVENT DATE: 201501
